FAERS Safety Report 18688787 (Version 1)
Quarter: 2020Q4

REPORT INFORMATION
  Report Type: Report from Study
  Country: IT (occurrence: IT)
  Receive Date: 20201231
  Receipt Date: 20201231
  Transmission Date: 20210114
  Serious: Yes (Hospitalization)
  Sender: FDA-Public Use
  Company Number: IT-GILEAD-2020-0511153

PATIENT
  Sex: Male

DRUGS (2)
  1. IDELALISIB [Suspect]
     Active Substance: IDELALISIB
     Dosage: 100 UNK
     Route: 048
     Dates: start: 20170320, end: 20190718
  2. IDELALISIB [Suspect]
     Active Substance: IDELALISIB
     Indication: B-CELL LYMPHOMA
     Dosage: 150 MG
     Route: 048
     Dates: start: 20161116, end: 20170315

REACTIONS (2)
  - Staphylococcal sepsis [Recovered/Resolved with Sequelae]
  - Dermatitis psoriasiform [Recovered/Resolved with Sequelae]

NARRATIVE: CASE EVENT DATE: 20190718
